FAERS Safety Report 8027737-X (Version None)
Quarter: 2012Q1

REPORT INFORMATION
  Report Type: 
  Country: None (occurrence: None)
  Receive Date: 20120106
  Receipt Date: 20120105
  Transmission Date: 20120608
  Serious: Yes (Hospitalization)
  Sender: FDA-Public Use
  Company Number: CA-ABBOTT-11P-028-0861584-00

PATIENT
  Sex: Male
  Weight: 63.56 kg

DRUGS (1)
  1. HUMIRA [Suspect]
     Indication: CROHN'S DISEASE
     Route: 058
     Dates: start: 20060909, end: 20110920

REACTIONS (7)
  - ANAL FISTULA [None]
  - INFECTION [None]
  - DIARRHOEA [None]
  - HAEMATOCHEZIA [None]
  - ABSCESS [None]
  - PYREXIA [None]
  - PAIN [None]
